FAERS Safety Report 5038084-2 (Version None)
Quarter: 2006Q2

REPORT INFORMATION
  Report Type: 
  Country: None (occurrence: None)
  Receive Date: 20060602
  Receipt Date: 20060224
  Transmission Date: 20061013
  Serious: No
  Sender: FDA-Public Use
  Company Number: US200602004848

PATIENT
  Sex: Male

DRUGS (4)
  1. ALIMTA [Suspect]
     Indication: LUNG NEOPLASM MALIGNANT
     Dosage: 500 MG/M2
  2. CYANOCOBALAMIN [Concomitant]
  3. FOLIC ACID (FOLIC ACID UNKNOWN MANUFACTURER) [Concomitant]
  4. DEXAMETHASONE TAB [Concomitant]

REACTIONS (2)
  - DRY SKIN [None]
  - RASH [None]
